FAERS Safety Report 15001572 (Version 1)
Quarter: 2018Q2

REPORT INFORMATION
  Report Type: Spontaneous
  Country: DE (occurrence: DE)
  Receive Date: 20180612
  Receipt Date: 20180612
  Transmission Date: 20180711
  Serious: Yes (Hospitalization)
  Sender: FDA-Public Use
  Company Number: DE-TEVA-2018-DE-905146

PATIENT
  Age: 74 Year
  Sex: Female

DRUGS (15)
  1. ALLOPURINOL. [Concomitant]
     Active Substance: ALLOPURINOL
     Route: 065
  2. TORASEMID [Concomitant]
     Active Substance: TORSEMIDE
     Route: 065
  3. SIMVASTATIN. [Concomitant]
     Active Substance: SIMVASTATIN
     Route: 065
  4. COLECALCIFEROL [Concomitant]
     Active Substance: CHOLECALCIFEROL
     Route: 065
  5. FORMOTEROL/FLUTICASON [Suspect]
     Active Substance: FLUTICASONE PROPIONATE\FORMOTEROL FUMARATE
     Route: 065
  6. ACETYLSALICYLSAEURE [Concomitant]
     Active Substance: ASPIRIN
     Route: 065
  7. ACLIDINIUM BROMIDE. [Concomitant]
     Active Substance: ACLIDINIUM BROMIDE
     Route: 065
  8. PANTOPRAZOL [Concomitant]
     Active Substance: PANTOPRAZOLE SODIUM
     Route: 065
  9. NEBIVOLOL. [Suspect]
     Active Substance: NEBIVOLOL
     Route: 065
  10. SALBUTAMOL [Concomitant]
     Active Substance: ALBUTEROL
     Route: 065
  11. TILIDIN/NALOXON [Concomitant]
     Active Substance: NALOXONE HYDROCHLORIDE\TILIDINE HYDROCHLORIDE
     Route: 065
  12. EISEN(II)GLYCINSULFAT [Suspect]
     Active Substance: FERROUS GLYCINE SULFATE
     Route: 065
  13. CANDESARTAN. [Concomitant]
     Active Substance: CANDESARTAN
     Route: 065
  14. PREDNICARBAT [Suspect]
     Active Substance: PREDNICARBATE
     Route: 065
  15. METAMIZOL [Concomitant]
     Active Substance: METAMIZOLE SODIUM
     Route: 065

REACTIONS (3)
  - Dyspnoea [Unknown]
  - General physical health deterioration [Unknown]
  - Oedema peripheral [Unknown]
